FAERS Safety Report 5265236-9 (Version None)
Quarter: 2007Q1

REPORT INFORMATION
  Report Type: 
  Country: None (occurrence: None)
  Receive Date: 20061213
  Receipt Date: 20040707
  Transmission Date: 20070707
  Serious: Yes (Other)
  Sender: FDA-Public Use
  Company Number: 2004UW11586

PATIENT
  Age: 75 Year
  Sex: Male
  Weight: 131.5431 kg

DRUGS (4)
  1. IRESSA [Suspect]
     Indication: LUNG NEOPLASM MALIGNANT
     Dosage: 250 MG PO
     Route: 048
     Dates: start: 20040408
  2. COUMADIN [Suspect]
     Indication: ANTICOAGULANT THERAPY
     Dosage: HELD FOR 3 DAYS
  3. COUMADIN [Suspect]
     Indication: ANTICOAGULANT THERAPY
  4. 9 OTHER UNSPECIFIED MEDICATIONS [Concomitant]

REACTIONS (2)
  - DYSPNOEA [None]
  - HAEMOPTYSIS [None]
